FAERS Safety Report 7941998-4 (Version None)
Quarter: 2011Q4

REPORT INFORMATION
  Report Type: 
  Country: None (occurrence: None)
  Receive Date: 20111122
  Receipt Date: 20111122
  Transmission Date: 20120403
  Serious: No
  Sender: FDA-Public Use
  Company Number: None

PATIENT
  Sex: Female
  Weight: 60.3284 kg

DRUGS (2)
  1. ACTONEL [Suspect]
     Indication: OSTEOPENIA
     Dosage: 35MG WEEKLY P.O.
     Route: 048
     Dates: end: 20100101
  2. ACTONEL [Suspect]
     Dosage: 150MG MONTHLY P.O.
     Route: 048

REACTIONS (2)
  - MEDICAL DEVICE IMPLANTATION [None]
  - OSTEONECROSIS OF JAW [None]
